FAERS Safety Report 23660800 (Version 1)
Quarter: 2024Q1

REPORT INFORMATION
  Report Type: Other
  Country: DE (occurrence: None)
  Receive Date: 20240322
  Receipt Date: 20240322
  Transmission Date: 20240410
  Serious: No
  Sender: FDA-Public Use
  Company Number: DE-ROCHE-2972751

PATIENT
  Age: 23 Year
  Sex: Male
  Weight: 94 kg

DRUGS (13)
  1. OCREVUS [Suspect]
     Active Substance: OCRELIZUMAB
     Indication: Relapsing multiple sclerosis
     Route: 042
     Dates: start: 20220908, end: 20220923
  2. OCREVUS [Suspect]
     Active Substance: OCRELIZUMAB
     Route: 042
     Dates: start: 20230313
  3. FINGOLIMOD [Suspect]
     Active Substance: FINGOLIMOD
     Indication: Relapsing multiple sclerosis
     Route: 048
     Dates: start: 20200514
  4. SPASMEX (GERMANY) [Concomitant]
     Indication: Bladder dysfunction
     Route: 048
     Dates: start: 20221219, end: 20221223
  5. FOLIC ACID [Concomitant]
     Active Substance: FOLIC ACID
     Route: 048
  6. AZULFIDINE [Concomitant]
     Active Substance: SULFASALAZINE
     Indication: Multiple sclerosis relapse prophylaxis
     Route: 048
     Dates: start: 20210719
  7. ETORICAN [Concomitant]
     Indication: Multiple sclerosis relapse prophylaxis
     Route: 048
     Dates: start: 20210917
  8. IBUPROFEN [Concomitant]
     Active Substance: IBUPROFEN
     Indication: Pain management
     Route: 048
     Dates: start: 20200501
  9. PFIZER-BIONTECH COVID-19 VACCINE [Concomitant]
     Active Substance: TOZINAMERAN
     Indication: COVID-19 immunisation
     Dates: start: 20210617, end: 20210712
  10. CHOLECALCIFEROL [Concomitant]
     Active Substance: CHOLECALCIFEROL
     Indication: Vitamin D deficiency
     Route: 048
     Dates: start: 201607
  11. CANNABIDIOL [Concomitant]
     Active Substance: CANNABIDIOL
     Route: 048
     Dates: start: 20220520
  12. METHOTREXATE [Concomitant]
     Active Substance: METHOTREXATE
     Indication: Axial spondyloarthritis
     Route: 048
     Dates: start: 20220419
  13. FINGOLIMOD [Concomitant]
     Active Substance: FINGOLIMOD
     Indication: Multiple sclerosis
     Route: 048
     Dates: start: 20200514, end: 20211101

REACTIONS (3)
  - Arthralgia [Not Recovered/Not Resolved]
  - COVID-19 [Recovered/Resolved]
  - COVID-19 [Recovered/Resolved]

NARRATIVE: CASE EVENT DATE: 20211101
